FAERS Safety Report 14948125 (Version 1)
Quarter: 2018Q2

REPORT INFORMATION
  Report Type: Report from Study
  Country: CZ (occurrence: CZ)
  Receive Date: 20180529
  Receipt Date: 20180529
  Transmission Date: 20180711
  Serious: Yes (Other)
  Sender: FDA-Public Use
  Company Number: CZ-PFIZER INC-2018208458

PATIENT
  Age: 41 Year
  Sex: Female

DRUGS (12)
  1. CALCIUM FOLINATE [Suspect]
     Active Substance: LEUCOVORIN CALCIUM
     Indication: COLORECTAL CANCER METASTATIC
     Dosage: 730 MG, CYCLIC
     Route: 041
     Dates: start: 20150930, end: 20150930
  2. FLUOROURACIL. [Suspect]
     Active Substance: FLUOROURACIL
     Dosage: 4370 MG, CYCLIC
     Route: 041
     Dates: start: 20150930
  3. NEUROL /00595201/ [Concomitant]
     Active Substance: ALPRAZOLAM
     Dosage: UNK
     Route: 065
     Dates: start: 201501
  4. LETROX [Concomitant]
     Active Substance: LEVOTHYROXINE SODIUM
     Dosage: UNK
     Route: 065
     Dates: start: 2004
  5. AFLIBERCEPT [Suspect]
     Active Substance: AFLIBERCEPT
     Indication: COLORECTAL CANCER METASTATIC
     Dosage: 288 MG, CYCLIC
     Route: 041
     Dates: start: 20150930, end: 20150930
  6. QUAMATEL [Concomitant]
     Active Substance: FAMOTIDINE
     Indication: PROPHYLAXIS
     Dosage: UNK
     Route: 065
     Dates: start: 20150930, end: 20150930
  7. APAURIN [Concomitant]
     Active Substance: DIAZEPAM
     Indication: PROPHYLAXIS
     Route: 065
     Dates: start: 20150930, end: 20150930
  8. FLUOROURACIL. [Suspect]
     Active Substance: FLUOROURACIL
     Indication: COLORECTAL CANCER METASTATIC
     Dosage: 730 MG, CYCLIC
     Route: 040
     Dates: start: 20150930, end: 20150930
  9. ATROPIN-POS [Concomitant]
     Indication: PROPHYLAXIS
     Dosage: UNK
     Route: 065
     Dates: start: 20150930, end: 20150930
  10. IRINOTECAN HCL [Suspect]
     Active Substance: IRINOTECAN HYDROCHLORIDE
     Indication: COLORECTAL CANCER METASTATIC
     Dosage: 325 MG, CYCLIC
     Route: 041
     Dates: start: 20150930, end: 20150930
  11. G-CSF [Concomitant]
     Active Substance: GRANULOCYTE COLONY-STIMULATING FACTOR NOS
     Indication: PROPHYLAXIS
     Dosage: UNK
     Route: 065
     Dates: start: 20151005, end: 20151009
  12. HELICID /00661201/ [Concomitant]
     Indication: PROPHYLAXIS
     Route: 065
     Dates: start: 2012

REACTIONS (2)
  - Hypokalaemia [Recovered/Resolved]
  - Anaemia [Not Recovered/Not Resolved]

NARRATIVE: CASE EVENT DATE: 20151012
